FAERS Safety Report 17481561 (Version 1)
Quarter: 2020Q1

REPORT INFORMATION
  Report Type: Spontaneous
  Country: FR (occurrence: FR)
  Receive Date: 20200302
  Receipt Date: 20200302
  Transmission Date: 20200409
  Serious: Yes (Hospitalization, Other)
  Sender: FDA-Public Use
  Company Number: FR-SA-2020SA048478

PATIENT
  Age: 63 Year
  Sex: Female

DRUGS (3)
  1. PRIMPERAN [Concomitant]
     Active Substance: METOCLOPRAMIDE HYDROCHLORIDE
  2. LEXOMIL [Concomitant]
     Active Substance: BROMAZEPAM
  3. RIFATER [Suspect]
     Active Substance: ISONIAZID\PYRAZINAMIDE\RIFAMPIN
     Indication: TUBERCULOSIS
     Dosage: 4 DF, QD
     Dates: start: 201912, end: 20200127

REACTIONS (3)
  - Scratch [Unknown]
  - Thrombocytopenia [Unknown]
  - Skin lesion [Unknown]

NARRATIVE: CASE EVENT DATE: 20200206
